FAERS Safety Report 12394167 (Version 2)
Quarter: 2016Q2

REPORT INFORMATION
  Report Type: Spontaneous
  Country: US (occurrence: US)
  Receive Date: 20160523
  Receipt Date: 20160526
  Transmission Date: 20160815
  Serious: Yes (Death, Hospitalization)
  Sender: FDA-Public Use
  Company Number: US-VIFOR (INTERNATIONAL) INC.-VIT-2016-02419

PATIENT
  Age: 64 Year
  Sex: Male
  Weight: 77.5 kg

DRUGS (1)
  1. MIRCERA [Suspect]
     Active Substance: METHOXY POLYETHYLENE GLYCOL-EPOETIN BETA
     Indication: NEPHROGENIC ANAEMIA
     Route: 040
     Dates: start: 20160507

REACTIONS (3)
  - Dyspnoea [Fatal]
  - Unresponsive to stimuli [Fatal]
  - Feeling abnormal [Fatal]

NARRATIVE: CASE EVENT DATE: 20160507
